FAERS Safety Report 7919768-2 (Version None)
Quarter: 2011Q4

REPORT INFORMATION
  Report Type: 
  Country: None (occurrence: None)
  Receive Date: 20111117
  Receipt Date: 20111107
  Transmission Date: 20120403
  Serious: Yes (Hospitalization)
  Sender: FDA-Public Use
  Company Number: CA-JNJFOC-20111103101

PATIENT

DRUGS (1)
  1. REMICADE [Suspect]
     Indication: AUTOIMMUNE DISORDER
     Route: 042

REACTIONS (5)
  - OSTEOMYELITIS [None]
  - STAPHYLOCOCCAL INFECTION [None]
  - SUBCUTANEOUS ABSCESS [None]
  - SKIN ULCER [None]
  - SEPSIS [None]
